FAERS Safety Report 4595410-6 (Version None)
Quarter: 2005Q1

REPORT INFORMATION
  Report Type: 
  Country: None (occurrence: None)
  Receive Date: 20050228
  Receipt Date: 20050228
  Transmission Date: 20050727
  Serious: Yes (Hospitalization)
  Sender: FDA-Public Use
  Company Number: None

PATIENT
  Age: 30 Year
  Sex: Male

DRUGS (3)
  1. DOCETAXEL [Suspect]
     Indication: METASTATIC MALIGNANT MELANOMA
     Dosage: 65 MG/M2 IV Q 3W
     Route: 042
     Dates: start: 20050203
  2. OXALIPLATIN [Suspect]
     Dosage: 85 MG /M2 IV Q 3 W
     Route: 042
     Dates: start: 20050204
  3. GM-CSF 600 MG, SQ X 10 DAYS (2/5/05-} 2/8/05) [Suspect]
     Dosage: 600 MG, SQ X10 DAYS
     Route: 058
     Dates: start: 20050205, end: 20050208

REACTIONS (3)
  - BLOOD BILIRUBIN INCREASED [None]
  - DISEASE PROGRESSION [None]
  - HEPATIC FAILURE [None]
